FAERS Safety Report 5519650-4 (Version None)
Quarter: 2007Q4

REPORT INFORMATION
  Report Type: 
  Country: None (occurrence: None)
  Receive Date: 20071116
  Receipt Date: 20071018
  Transmission Date: 20080405
  Serious: No
  Sender: FDA-Public Use
  Company Number: US-JNJFOC-20071005108

PATIENT
  Age: 41 Year
  Sex: Female
  Weight: 80.74 kg

DRUGS (3)
  1. RISPERDAL CONSTA [Suspect]
     Indication: SCHIZOPHRENIA
     Route: 030
  2. INVEGA [Suspect]
     Indication: SCHIZOPHRENIA
     Route: 048
  3. LEXAPRO [Concomitant]
     Indication: SCHIZOPHRENIA

REACTIONS (5)
  - HYPOAESTHESIA [None]
  - MUSCULOSKELETAL STIFFNESS [None]
  - NAUSEA [None]
  - PAIN IN EXTREMITY [None]
  - VOMITING [None]
